FAERS Safety Report 21297111 (Version 3)
Quarter: 2022Q4

REPORT INFORMATION
  Report Type: Report from Study
  Country: DE (occurrence: DE)
  Receive Date: 20220906
  Receipt Date: 20221128
  Transmission Date: 20230112
  Serious: Yes (Hospitalization)
  Sender: FDA-Public Use
  Company Number: None

PATIENT
  Age: 41 Year
  Sex: Male

DRUGS (15)
  1. METHOTREXATE [Suspect]
     Active Substance: METHOTREXATE
     Indication: Rheumatoid arthritis
     Dosage: END DATE-BETWEEN 26-SEP-2017-28-FEB-2018, DURATION : 6 MONTH, UNIT DOSE: 15 MG
     Dates: start: 201703, end: 20170926
  2. METHOTREXATE [Suspect]
     Active Substance: METHOTREXATE
     Dosage: START DATE-BETWEEN-26-SEP-2017-28-FEB-2018, END DATE-BETWEEN 26-OCT-2020-08-JUN-2021, DURATION : 112
     Dates: start: 20170926, end: 20201026
  3. METHOTREXATE [Suspect]
     Active Substance: METHOTREXATE
     Dosage: 15 MILLIGRAM, THERAPY END DATE : 15 MG
     Dates: start: 20170926
  4. METHOTREXATE [Suspect]
     Active Substance: METHOTREXATE
     Dosage: 15 MILLIGRAM, THERAPY END DATE : ASKU
     Dates: start: 20170309
  5. METHOTREXATE [Suspect]
     Active Substance: METHOTREXATE
     Dosage: 10 MILLIGRAM, THERAPY END DATE : ASKU
     Dates: start: 20180905
  6. METHOTREXATE [Suspect]
     Active Substance: METHOTREXATE
     Dosage: 10 MILLIGRAM, THERAPY END DATE : ASKU
     Dates: start: 20200311
  7. METHOTREXATE [Suspect]
     Active Substance: METHOTREXATE
     Dosage: 10 MILLIGRAM, THERAPY END DATE : ASKU
     Dates: start: 20190319
  8. METHOTREXATE [Suspect]
     Active Substance: METHOTREXATE
     Dosage: 10 MILLIGRAM, THERAPY END DATE : ASKU
     Dates: start: 20190926
  9. METHOTREXATE [Suspect]
     Active Substance: METHOTREXATE
     Dosage: 15 MILLIGRAM, THERAPY END DATE : ASKU
     Dates: start: 20170622
  10. METHOTREXATE [Suspect]
     Active Substance: METHOTREXATE
     Dosage: 10 MILLIGRAM, THERAPY END DATE : ASKU
     Dates: start: 20180228
  11. HUMIRA [Suspect]
     Active Substance: ADALIMUMAB
     Indication: Rheumatoid arthritis
     Dosage: 40 MILLIGRAM, DURATION : 11 MONTH
     Dates: start: 201703, end: 201802
  12. HUMIRA [Suspect]
     Active Substance: ADALIMUMAB
     Dosage: 40 MILLIGRAM, Q2W, FREQUENCY TIME: 2 WEEK DURATION : 1 YEAR
     Dates: start: 201804, end: 20200316
  13. HUMIRA [Suspect]
     Active Substance: ADALIMUMAB
     Dosage: 40 MILLIGRAM, FREQUENCY TIME : 2 WEEK, DURATION : 1 YEAR
     Dates: start: 201804, end: 20200316
  14. SULFASALAZINE [Suspect]
     Active Substance: SULFASALAZINE
     Indication: Rheumatoid arthritis
     Dosage: 500 MILLIGRAM, THERAPY END DATE : NASK
     Dates: start: 20170622
  15. SULFASALAZINE [Suspect]
     Active Substance: SULFASALAZINE
     Dosage: 500 MILLIGRAM, THERAPY END DATE : NASK
     Dates: start: 20170309

REACTIONS (7)
  - Haemorrhagic disorder [Unknown]
  - Atrial septal defect acquired [Not Recovered/Not Resolved]
  - Enanthema [Recovered/Resolved]
  - Atrial septal defect [Recovered/Resolved]
  - Intervertebral disc annular tear [Unknown]
  - Aortic valve incompetence [Not Recovered/Not Resolved]
  - Aortic valve incompetence [Not Recovered/Not Resolved]

NARRATIVE: CASE EVENT DATE: 20200803
